FAERS Safety Report 19070610 (Version 2)
Quarter: 2023Q2

REPORT INFORMATION
  Report Type: Other
  Country: FR (occurrence: FR)
  Receive Date: 20210330
  Receipt Date: 20230411
  Transmission Date: 20230721
  Serious: Yes (Life-Threatening, Hospitalization, Other)
  Sender: FDA-Public Use
  Company Number: None

PATIENT
  Age: 70 Year
  Sex: Male

DRUGS (11)
  1. XOSPATA [Suspect]
     Active Substance: GILTERITINIB
     Indication: Acute myeloid leukaemia recurrent
     Route: 048
     Dates: start: 20201127, end: 20210129
  2. XOSPATA [Suspect]
     Active Substance: GILTERITINIB
     Dosage: 80 MG, DAILY
     Route: 048
     Dates: start: 20210208, end: 20210225
  3. XOSPATA [Suspect]
     Active Substance: GILTERITINIB
     Dosage: 120 MG, DAILY
     Route: 065
     Dates: start: 20210315
  4. XOSPATA [Suspect]
     Active Substance: GILTERITINIB
     Route: 065
  5. HYDREA [Suspect]
     Active Substance: HYDROXYUREA
     Indication: Acute myeloid leukaemia recurrent
     Dosage: 2 DF, TWICE DAILY (2 CAPSULES IN THE MORNING AND IN THE EVENING)
     Route: 065
     Dates: start: 20201127, end: 20201207
  6. PRIMPERAN [Concomitant]
     Active Substance: METOCLOPRAMIDE HYDROCHLORIDE
     Indication: Nausea
     Dosage: 1 DF, THRICE DAILY IN CASE OF NAUSEA
     Route: 048
  7. EBASTINE [Concomitant]
     Active Substance: EBASTINE
     Indication: Pruritus
     Dosage: 5 MG, ONCE DAILY (IN CASE OF ITCHING)
     Route: 065
  8. RACECADOTRIL [Concomitant]
     Active Substance: RACECADOTRIL
     Indication: Diarrhoea
     Dosage: 1 DF, THRICE DAILY IN CASE OF DIARRHEA
     Route: 048
  9. PANTOPRAZOLE [Concomitant]
     Active Substance: PANTOPRAZOLE
     Indication: Product used for unknown indication
     Dosage: 20 MG, ONCE DAILY (IN THE EVENING)
     Route: 048
  10. URSODIOL [Concomitant]
     Active Substance: URSODIOL
     Indication: Product used for unknown indication
     Dosage: 500 MG, TWICE DAILY (1 TABLET IN THE MORNING AND 1 TABLET IN THE EVENING)
     Route: 048
  11. MOVICOL [Concomitant]
     Active Substance: POLYETHYLENE GLYCOL 3350\POTASSIUM CHLORIDE\SODIUM BICARBONATE\SODIUM CHLORIDE
     Indication: Constipation
     Dosage: 1 TO 2 SACHETS PER DAY, ONCE DAILY IN CASE OF CONSTIPATION
     Route: 065

REACTIONS (11)
  - Myopericarditis [Recovered/Resolved]
  - Differentiation syndrome [Recovered/Resolved]
  - Differentiation syndrome [Recovered/Resolved]
  - Bone marrow disorder [Recovering/Resolving]
  - Hyperleukocytosis [Recovering/Resolving]
  - Febrile bone marrow aplasia [Recovering/Resolving]
  - Acute myeloid leukaemia [Unknown]
  - Bone marrow failure [Recovering/Resolving]
  - Myelocytosis [Unknown]
  - Off label use [Recovered/Resolved]
  - Product use issue [Recovered/Resolved]

NARRATIVE: CASE EVENT DATE: 20201127
